FAERS Safety Report 14946899 (Version 2)
Quarter: 2018Q2

REPORT INFORMATION
  Report Type: Spontaneous
  Country: CA (occurrence: CA)
  Receive Date: 20180529
  Receipt Date: 20180620
  Transmission Date: 20180711
  Serious: Yes (Other)
  Sender: FDA-Public Use
  Company Number: CA-PFIZER INC-2017511512

PATIENT
  Age: 52 Year
  Sex: Female

DRUGS (2)
  1. PREDNISONE. [Concomitant]
     Active Substance: PREDNISONE
     Dosage: UNK
  2. XELJANZ [Suspect]
     Active Substance: TOFACITINIB CITRATE
     Indication: RHEUMATOID ARTHRITIS
     Dosage: 5 MG, TWICE DAILY
     Route: 048
     Dates: start: 20171024

REACTIONS (11)
  - Weight decreased [Unknown]
  - Peripheral coldness [Not Recovered/Not Resolved]
  - Muscle rupture [Unknown]
  - Dysstasia [Not Recovered/Not Resolved]
  - Drug effect incomplete [Not Recovered/Not Resolved]
  - Joint dislocation [Unknown]
  - Lipoma [Not Recovered/Not Resolved]
  - Road traffic accident [Unknown]
  - Lymphoma [Not Recovered/Not Resolved]
  - Hypoaesthesia [Not Recovered/Not Resolved]
  - Drug effect delayed [Unknown]
